FAERS Safety Report 7132473-8 (Version None)
Quarter: 2010Q4

REPORT INFORMATION
  Report Type: 
  Country: None (occurrence: None)
  Receive Date: 20101202
  Receipt Date: 20101123
  Transmission Date: 20110411
  Serious: Yes (Hospitalization)
  Sender: FDA-Public Use
  Company Number: GXKR2010DE12328

PATIENT
  Sex: Male
  Weight: 53 kg

DRUGS (3)
  1. GABAPENTIN HEXAL (NGX) [Suspect]
     Indication: EPILEPSY
     Dosage: 900 MG DAILY
     Route: 048
     Dates: start: 20070101
  2. LEVOTHYROXINE SODIUM [Concomitant]
     Dosage: 100 UG, QD
     Route: 048
  3. RANITIDINE [Concomitant]
     Indication: THYROIDECTOMY
     Dosage: 300 MG, QD
     Route: 048
     Dates: start: 19980101

REACTIONS (1)
  - ANOREXIA NERVOSA [None]
